FAERS Safety Report 7178789-0 (Version None)
Quarter: 2010Q4

REPORT INFORMATION
  Report Type: 
  Country: None (occurrence: None)
  Receive Date: 20101221
  Receipt Date: 20101207
  Transmission Date: 20110411
  Serious: Yes (Other)
  Sender: FDA-Public Use
  Company Number: US-JNJFOC-20101206035

PATIENT

DRUGS (5)
  1. DOXORUBICIN HCL [Suspect]
     Indication: MULTIPLE MYELOMA
     Dosage: ON DAY 4 OF A 3 WEEK CYCLE, UP TO 6 CYCLES
     Route: 042
  2. BORTEZOMIB [Suspect]
     Indication: MULTIPLE MYELOMA
     Dosage: ON DAYS 1, 4, 8, AND 11 OF A 3 WEEK CYCLE, UP TO 6 CYCLES
     Route: 042
  3. DEXAMETHASONE [Suspect]
     Indication: MULTIPLE MYELOMA
     Dosage: FROM CYCLES 2-6, FROM PATIENT 11 ONWARDS
     Route: 048
  4. DEXAMETHASONE [Suspect]
     Dosage: DAYS 1 - 4 EACH CYCLE, AFTER 10 PATIENTS WAS GIVEN ON DAYS 1, 2, 4, 5, 8,9, 11 AND 12 ON CYCLE 1
     Route: 048
  5. ACYCLOVIR [Concomitant]
     Indication: PROPHYLAXIS
     Route: 048

REACTIONS (1)
  - MOOD ALTERED [None]
